FAERS Safety Report 23808907 (Version 3)
Quarter: 2024Q2

REPORT INFORMATION
  Report Type: Spontaneous
  Country: US (occurrence: US)
  Receive Date: 20240502
  Receipt Date: 20240605
  Transmission Date: 20240715
  Serious: No
  Sender: FDA-Public Use
  Company Number: US-PFIZER INC-202400094697

PATIENT
  Age: 15 Year
  Sex: Male

DRUGS (2)
  1. GENOTROPIN [Suspect]
     Active Substance: SOMATROPIN
     Indication: Short stature
     Dosage: TAKES IT 6 DAYS A WEEK, OFF DAY,
     Dates: start: 2022, end: 202301
  2. GENOTROPIN [Suspect]
     Active Substance: SOMATROPIN
     Dosage: THINKS IT IS 3.4UNITS NOT REALLY SURE, IF IT IS 3.4UNITS OR 3.4MG
     Dates: start: 202401

REACTIONS (3)
  - Drug dose omission by device [Unknown]
  - Device use error [Unknown]
  - Device breakage [Unknown]
